FAERS Safety Report 7237380-8 (Version None)
Quarter: 2011Q1

REPORT INFORMATION
  Report Type: 
  Country: None (occurrence: None)
  Receive Date: 20110121
  Receipt Date: 20101228
  Transmission Date: 20110831
  Serious: Yes (Hospitalization, Other)
  Sender: FDA-Public Use
  Company Number: US-PFIZER INC-2009226496

PATIENT
  Sex: Female

DRUGS (7)
  1. PREMPRO [Suspect]
     Indication: HORMONE REPLACEMENT THERAPY
     Dosage: 0.625/2.5
     Dates: start: 19960523, end: 20010901
  2. ESTRATAB [Suspect]
     Indication: HORMONE REPLACEMENT THERAPY
     Dosage: 0.625
     Dates: start: 19940908
  3. ALLEGRA D 24 HOUR [Concomitant]
     Indication: HYPERSENSITIVITY
     Dosage: UNK
     Dates: start: 20010101
  4. ATENOLOL [Concomitant]
     Indication: HYPERTENSION
     Dosage: UNK
     Dates: start: 20000101, end: 20011001
  5. PROVERA [Suspect]
     Indication: HORMONE REPLACEMENT THERAPY
     Dosage: 10MG
     Route: 048
     Dates: start: 19901101, end: 19960522
  6. PREMARIN [Suspect]
     Indication: HORMONE REPLACEMENT THERAPY
     Dosage: 0.625
     Dates: start: 19930607, end: 19960522
  7. LIPITOR [Concomitant]
     Indication: BLOOD CHOLESTEROL INCREASED
     Dosage: 10 MG, UNK
     Dates: start: 19980401, end: 20020601

REACTIONS (1)
  - BREAST CANCER [None]
